FAERS Safety Report 23950012 (Version 1)
Quarter: 2024Q2

REPORT INFORMATION
  Report Type: Spontaneous
  Country: US (occurrence: US)
  Receive Date: 20240607
  Receipt Date: 20240607
  Transmission Date: 20240716
  Serious: Yes (Hospitalization)
  Sender: FDA-Public Use
  Company Number: US-AUROBINDO-AUR-APL-2024-026801

PATIENT
  Age: 61 Year
  Sex: Male

DRUGS (7)
  1. LORAZEPAM [Suspect]
     Active Substance: LORAZEPAM
     Indication: Prophylaxis
     Dosage: 1 MILLIGRAM, TWO TIMES A DAY
     Route: 048
  2. BACLOFEN [Suspect]
     Active Substance: BACLOFEN
     Indication: Prophylaxis
     Dosage: 20 MILLIGRAM, TWO TIMES A DAY
     Route: 065
  3. FENTANYL [Concomitant]
     Active Substance: FENTANYL\FENTANYL CITRATE
     Indication: Pain
     Dosage: UNK
     Route: 065
  4. GABAPENTIN [Concomitant]
     Active Substance: GABAPENTIN
     Indication: Pain
     Dosage: UNK
     Route: 065
  5. METHADONE [Concomitant]
     Active Substance: METHADONE HYDROCHLORIDE
     Indication: Pain
     Dosage: UNK
     Route: 065
  6. TIZANIDINE [Concomitant]
     Active Substance: TIZANIDINE
     Indication: Pain
     Dosage: UNK
     Route: 065
  7. CLONAZEPAM [Concomitant]
     Active Substance: CLONAZEPAM
     Indication: Pain
     Dosage: UNK
     Route: 065

REACTIONS (2)
  - Drug withdrawal syndrome [Unknown]
  - Drug ineffective [Unknown]
